FAERS Safety Report 20598878 (Version 2)
Quarter: 2022Q2

REPORT INFORMATION
  Report Type: Spontaneous
  Country: US (occurrence: US)
  Receive Date: 20220315
  Receipt Date: 20220610
  Transmission Date: 20220720
  Serious: No
  Sender: FDA-Public Use
  Company Number: US-BIOVITRUM-2022US03397

PATIENT
  Age: 36 Year
  Sex: Male

DRUGS (2)
  1. KINERET [Suspect]
     Active Substance: ANAKINRA
     Indication: Psoriatic arthropathy
     Route: 058
     Dates: start: 20220221
  2. KINERET [Suspect]
     Active Substance: ANAKINRA

REACTIONS (7)
  - Malaise [Unknown]
  - Sleep disorder [Unknown]
  - Night sweats [Unknown]
  - Injection site erythema [Recovered/Resolved]
  - Injection site pruritus [Unknown]
  - Injection site swelling [Unknown]
  - Off label use [Unknown]

NARRATIVE: CASE EVENT DATE: 20220221
